FAERS Safety Report 7766584-0 (Version None)
Quarter: 2011Q3

REPORT INFORMATION
  Report Type: 
  Country: None (occurrence: None)
  Receive Date: 20110922
  Receipt Date: 20110909
  Transmission Date: 20111222
  Serious: Yes (Other)
  Sender: FDA-Public Use
  Company Number: GB-RANBAXY-2011R1-47705

PATIENT
  Age: 76 Year
  Sex: Female
  Weight: 67 kg

DRUGS (29)
  1. SIMVASTATIN [Suspect]
     Dosage: UNK
     Route: 065
     Dates: start: 20110725, end: 20110822
  2. AQUEOUS CREAM [Concomitant]
     Indication: PRODUCT USED FOR UNKNOWN INDICATION
     Dosage: UNK
     Route: 065
     Dates: start: 20110519, end: 20110616
  3. BECLOMETHASONE DIPROPIONATE [Concomitant]
     Dosage: UNK
     Route: 065
     Dates: start: 20110718
  4. CALCIUM CARBONATE [Concomitant]
     Indication: PRODUCT USED FOR UNKNOWN INDICATION
     Dosage: UNK
     Route: 065
     Dates: start: 20110519
  5. SLOZEM [Concomitant]
     Dosage: UNK
     Route: 065
     Dates: start: 20110519, end: 20110712
  6. SIMVASTATIN [Suspect]
     Indication: PRODUCT USED FOR UNKNOWN INDICATION
     Dosage: UNK
     Route: 065
     Dates: start: 20110901
  7. SLOZEM [Concomitant]
     Indication: PRODUCT USED FOR UNKNOWN INDICATION
     Dosage: UNK
     Route: 065
     Dates: start: 20110718
  8. GABAPENTIN [Concomitant]
     Indication: PRODUCT USED FOR UNKNOWN INDICATION
     Dosage: UNK
     Route: 065
     Dates: start: 20110718
  9. HYDROXOCOBALAMIN [Concomitant]
     Dosage: UNK
     Route: 065
     Dates: start: 20110622, end: 20110623
  10. HYPROMELLOSE [Concomitant]
     Dosage: UNK
     Route: 065
     Dates: start: 20110519, end: 20110712
  11. OMEPRAZOLE [Concomitant]
     Indication: PRODUCT USED FOR UNKNOWN INDICATION
     Dosage: UNK
     Route: 065
     Dates: start: 20110718
  12. OMEPRAZOLE [Concomitant]
     Dosage: UNK
     Route: 065
     Dates: start: 20110519, end: 20110712
  13. ACETAMINOPHEN [Concomitant]
     Indication: PRODUCT USED FOR UNKNOWN INDICATION
     Dosage: UNK
     Route: 065
     Dates: start: 20110614, end: 20110626
  14. BECLOMETHASONE DIPROPIONATE [Concomitant]
     Indication: PRODUCT USED FOR UNKNOWN INDICATION
     Dosage: UNK
     Route: 065
     Dates: start: 20110614, end: 20110712
  15. HYDROXOCOBALAMIN [Concomitant]
     Indication: PRODUCT USED FOR UNKNOWN INDICATION
     Dosage: UNK
     Route: 065
     Dates: start: 20110816, end: 20110817
  16. DOCUSATE SODIUM [Concomitant]
     Indication: PRODUCT USED FOR UNKNOWN INDICATION
     Dosage: UNK
     Route: 065
     Dates: start: 20110718
  17. DOCUSATE SODIUM [Concomitant]
     Dosage: UNK
     Route: 065
     Dates: start: 20110519, end: 20110714
  18. TRIMETHOPRIM [Concomitant]
     Indication: PRODUCT USED FOR UNKNOWN INDICATION
     Dosage: UNK
     Route: 065
     Dates: start: 20110608, end: 20110615
  19. ZOPICLONE [Concomitant]
     Dosage: UNK
     Route: 065
     Dates: start: 20110519, end: 20110712
  20. CLOPIDOGREL [Concomitant]
     Indication: PRODUCT USED FOR UNKNOWN INDICATION
     Dosage: UNK
     Route: 065
     Dates: start: 20110617, end: 20110717
  21. GABAPENTIN [Concomitant]
     Dosage: UNK
     Route: 065
     Dates: start: 20110519, end: 20110712
  22. HYDROXOCOBALAMIN [Concomitant]
     Dosage: UNK
     Route: 065
     Dates: start: 20110720, end: 20110721
  23. HYPROMELLOSE [Concomitant]
     Indication: PRODUCT USED FOR UNKNOWN INDICATION
     Dosage: UNK
     Route: 065
     Dates: start: 20110718
  24. LORATADINE [Concomitant]
     Indication: PRODUCT USED FOR UNKNOWN INDICATION
     Dosage: UNK
     Route: 065
     Dates: start: 20110617, end: 20110717
  25. RAMIPRIL [Concomitant]
     Indication: PRODUCT USED FOR UNKNOWN INDICATION
     Dosage: UNK
     Route: 065
     Dates: start: 20110718
  26. RAMIPRIL [Concomitant]
     Dosage: UNK
     Route: 065
     Dates: start: 20110519, end: 20110712
  27. LOFEPRAMINE [Concomitant]
     Indication: PRODUCT USED FOR UNKNOWN INDICATION
     Dosage: UNK
     Route: 065
     Dates: start: 20110418
  28. MEPTAZINOL [Concomitant]
     Indication: PRODUCT USED FOR UNKNOWN INDICATION
     Dosage: UNK
     Route: 065
     Dates: start: 20110815
  29. ZOPICLONE [Concomitant]
     Indication: PRODUCT USED FOR UNKNOWN INDICATION
     Dosage: UNK
     Route: 065
     Dates: start: 20110718

REACTIONS (1)
  - CONTUSION [None]
